FAERS Safety Report 9323610 (Version 2)
Quarter: 2013Q2

REPORT INFORMATION
  Report Type: Spontaneous
  Country: JP (occurrence: JP)
  Receive Date: 20130603
  Receipt Date: 20130625
  Transmission Date: 20140414
  Serious: Yes (Other)
  Sender: FDA-Public Use
  Company Number: JP-JNJFOC-20130517342

PATIENT
  Age: 70 Year
  Sex: Female
  Weight: 50 kg

DRUGS (23)
  1. TRAMCET [Suspect]
     Indication: PAIN
     Route: 048
     Dates: start: 20120627, end: 20121010
  2. TRAMCET [Suspect]
     Indication: PAIN
     Route: 048
     Dates: start: 20120620, end: 20120626
  3. TRAMCET [Suspect]
     Indication: PAIN
     Route: 048
     Dates: start: 20120514, end: 20120619
  4. LYRICA [Suspect]
     Indication: PAIN
     Route: 048
     Dates: start: 20120514, end: 20120919
  5. PRIMPERAN [Suspect]
     Indication: PRODUCT USED FOR UNKNOWN INDICATION
     Route: 065
     Dates: start: 20120514
  6. BAYASPIRIN [Concomitant]
     Route: 048
  7. SINGULAIR [Concomitant]
     Route: 048
  8. ISOSORBIDE DINITRATE [Concomitant]
     Route: 062
  9. NIKORANMART [Concomitant]
     Route: 048
  10. ITOROL [Concomitant]
     Route: 048
  11. DILTIAZEM HYDROCHLORIDE [Concomitant]
     Route: 048
  12. BENIDIPINE HYDROCHLORIDE [Concomitant]
     Route: 048
  13. CALFINA [Concomitant]
     Route: 048
  14. FUROSEMIDE [Concomitant]
     Route: 065
  15. SIMVASTATIN [Concomitant]
     Route: 048
  16. PULMICORT [Concomitant]
     Route: 048
  17. THYRADIN [Concomitant]
     Route: 048
  18. LOXONIN [Concomitant]
     Route: 062
  19. ESTAZOLAM [Concomitant]
     Route: 048
  20. SENNOSIDE [Concomitant]
     Route: 048
  21. LAXOBERON [Concomitant]
     Route: 048
  22. LANSOPRAZOLE [Concomitant]
     Route: 048
  23. YOKUKAN-SAN [Concomitant]
     Route: 048

REACTIONS (1)
  - Drug-induced liver injury [Recovering/Resolving]
